FAERS Safety Report 9174848 (Version 2)
Quarter: 2013Q2

REPORT INFORMATION
  Report Type: Spontaneous
  Country: US (occurrence: US)
  Receive Date: 20130320
  Receipt Date: 20130509
  Transmission Date: 20140414
  Serious: No
  Sender: FDA-Public Use
  Company Number: US-009507513-1303USA009308

PATIENT
  Sex: Female

DRUGS (1)
  1. DULERA [Suspect]
     Indication: CHRONIC OBSTRUCTIVE PULMONARY DISEASE
     Dosage: 200 / 5 MICROGRAMS, ONE PUFF, BID
     Route: 048

REACTIONS (4)
  - Underdose [Unknown]
  - Device malfunction [Unknown]
  - Product label confusion [Unknown]
  - No adverse event [Unknown]
